FAERS Safety Report 5468920-7 (Version None)
Quarter: 2007Q3

REPORT INFORMATION
  Report Type: 
  Country: None (occurrence: None)
  Receive Date: 20070926
  Receipt Date: 20070921
  Transmission Date: 20080115
  Serious: Yes (Disabling)
  Sender: FDA-Public Use
  Company Number: GB-MERCK-0709GBR00120

PATIENT
  Age: 67 Year
  Sex: Female
  Weight: 95 kg

DRUGS (7)
  1. ZOCOR [Suspect]
     Indication: LIPIDS INCREASED
     Route: 048
     Dates: start: 20070422, end: 20070423
  2. ZOCOR [Suspect]
     Route: 048
     Dates: start: 20070403, end: 20070420
  3. ZOCOR [Suspect]
     Route: 048
  4. ASPIRIN [Concomitant]
     Indication: CARDIOVASCULAR EVENT PROPHYLAXIS
     Route: 048
     Dates: start: 20060411
  5. ALBUTEROL SULFATE AND IPRATROPIUM BROMIDE [Concomitant]
     Indication: CHRONIC OBSTRUCTIVE PULMONARY DISEASE
     Dates: start: 20060605
  6. RIMONABANT [Concomitant]
     Indication: WEIGHT DECREASED
     Route: 048
     Dates: start: 20070108
  7. RAMIPRIL [Concomitant]
     Indication: BLOOD PRESSURE INCREASED
     Route: 048
     Dates: start: 20060705

REACTIONS (3)
  - EMOTIONAL DISTRESS [None]
  - HEADACHE [None]
  - SYNCOPE [None]
